FAERS Safety Report 9331524 (Version 2)
Quarter: 2013Q2

REPORT INFORMATION
  Report Type: Spontaneous
  Country: US (occurrence: US)
  Receive Date: 20130605
  Receipt Date: 20130627
  Transmission Date: 20140414
  Serious: No
  Sender: FDA-Public Use
  Company Number: US-PFIZER INC-2013168583

PATIENT
  Age: 55 Year
  Sex: Male

DRUGS (2)
  1. SUTENT [Suspect]
     Indication: RENAL CANCER
     Dosage: 50 MG, CYCLIC (QD 4 WEEK, THEN 2 WEEKS OFF)
     Route: 048
     Dates: start: 201210, end: 20130530
  2. CARDIZEM [Concomitant]
     Dosage: 120 MG, 1X/DAY

REACTIONS (1)
  - Blood pressure increased [Recovered/Resolved]
